FAERS Safety Report 9525374 (Version 1)
Quarter: 2013Q3

REPORT INFORMATION
  Report Type: Spontaneous
  Country: FR (occurrence: FR)
  Receive Date: 20130916
  Receipt Date: 20130916
  Transmission Date: 20140515
  Serious: Yes (Hospitalization)
  Sender: FDA-Public Use
  Company Number: FR-PFIZER INC-2013259504

PATIENT
  Age: 67 Year
  Sex: Male

DRUGS (5)
  1. TYGACIL [Suspect]
     Indication: INTERVERTEBRAL DISCITIS
     Dosage: 100 MG, DAILY
     Route: 042
     Dates: start: 20091030, end: 20091030
  2. TYGACIL [Suspect]
     Dosage: 50 MG, DAILY
     Route: 042
     Dates: start: 20091031, end: 20091118
  3. BACTRIM FORTE [Suspect]
     Indication: INTERVERTEBRAL DISCITIS
     Dosage: 1 DF, 3X/DAY
     Route: 048
     Dates: start: 20091006, end: 20091019
  4. ROCEPHINE [Suspect]
     Indication: INTERVERTEBRAL DISCITIS
     Dosage: UNK
     Route: 048
     Dates: start: 20090922, end: 20091006
  5. ROCEPHINE [Suspect]
     Dosage: 2 G, DAILY
     Route: 048
     Dates: start: 20091019, end: 20091030

REACTIONS (1)
  - Neutropenia [Recovered/Resolved]
